FAERS Safety Report 7026577-8 (Version None)
Quarter: 2010Q4

REPORT INFORMATION
  Report Type: 
  Country: None (occurrence: None)
  Receive Date: 20101004
  Receipt Date: 20100921
  Transmission Date: 20110411
  Serious: Yes (Other)
  Sender: FDA-Public Use
  Company Number: US-ELI_LILLY_AND_COMPANY-US201009005926

PATIENT
  Sex: Female

DRUGS (4)
  1. FORTEO [Suspect]
     Indication: OSTEOPOROSIS
     Dosage: 20 UG, DAILY (1/D)
     Dates: end: 20100801
  2. TOPROL-XL [Concomitant]
     Dosage: 25 MG, DAILY (1/D)
  3. LEVOXYL [Concomitant]
     Dosage: 0.125 MG, DAILY (1/D)
  4. TRIAMTEX [Concomitant]
     Dosage: UNK, DAILY (1/D)

REACTIONS (1)
  - ATRIAL FIBRILLATION [None]
